FAERS Safety Report 16306374 (Version 2)
Quarter: 2021Q1

REPORT INFORMATION
  Report Type: Spontaneous
  Country: US (occurrence: US)
  Receive Date: 20190513
  Receipt Date: 20210218
  Transmission Date: 20210419
  Serious: Yes (Other)
  Sender: FDA-Public Use
  Company Number: US-ASTRAZENECA-2019SE63786

PATIENT
  Sex: Female

DRUGS (39)
  1. PRILOSEC [Suspect]
     Active Substance: OMEPRAZOLE MAGNESIUM
     Indication: GASTROOESOPHAGEAL REFLUX DISEASE
     Route: 048
     Dates: start: 1990
  2. PEPCID [Concomitant]
     Active Substance: FAMOTIDINE
  3. TUMS [Concomitant]
     Active Substance: CALCIUM CARBONATE
     Dates: start: 2005
  4. GLUCOSAMINE [Concomitant]
     Active Substance: GLUCOSAMINE
  5. PROAIR HFA [Concomitant]
     Active Substance: ALBUTEROL SULFATE
  6. DEPO?PROVERA [Concomitant]
     Active Substance: MEDROXYPROGESTERONE ACETATE
  7. TOPAMAX [Concomitant]
     Active Substance: TOPIRAMATE
  8. NEXIUM [Suspect]
     Active Substance: ESOMEPRAZOLE MAGNESIUM
     Indication: GASTROOESOPHAGEAL REFLUX DISEASE
     Route: 048
     Dates: start: 199801, end: 201802
  9. CELEBREX [Concomitant]
     Active Substance: CELECOXIB
  10. DEPAKOTE [Concomitant]
     Active Substance: DIVALPROEX SODIUM
  11. PRILOSEC [Suspect]
     Active Substance: OMEPRAZOLE MAGNESIUM
     Indication: GASTROOESOPHAGEAL REFLUX DISEASE
     Route: 048
     Dates: start: 199801, end: 201802
  12. NEURONTIN [Concomitant]
     Active Substance: GABAPENTIN
  13. EFFEXOR XR [Concomitant]
     Active Substance: VENLAFAXINE HYDROCHLORIDE
  14. NEXIUM 24HR [Suspect]
     Active Substance: ESOMEPRAZOLE MAGNESIUM
     Indication: GASTROOESOPHAGEAL REFLUX DISEASE
     Route: 048
     Dates: start: 2014
  15. CELECOXIB. [Concomitant]
     Active Substance: CELECOXIB
     Indication: ANTIBIOTIC THERAPY
  16. TYLENOL [Concomitant]
     Active Substance: ACETAMINOPHEN
  17. NORVASC [Concomitant]
     Active Substance: AMLODIPINE BESYLATE
  18. LEXAPRO [Concomitant]
     Active Substance: ESCITALOPRAM OXALATE
  19. ROBAXIN [Concomitant]
     Active Substance: METHOCARBAMOL
  20. HYDROCORTISONE. [Concomitant]
     Active Substance: HYDROCORTISONE
  21. TROKENDI [Concomitant]
     Active Substance: TOPIRAMATE
  22. ZONEGRAN [Concomitant]
     Active Substance: ZONISAMIDE
  23. QVAR [Concomitant]
     Active Substance: BECLOMETHASONE DIPROPIONATE
  24. NEXIUM [Suspect]
     Active Substance: ESOMEPRAZOLE MAGNESIUM
     Indication: GASTROOESOPHAGEAL REFLUX DISEASE
     Route: 048
     Dates: start: 2001, end: 2019
  25. PANTOPRAZOLE [Suspect]
     Active Substance: PANTOPRAZOLE
     Indication: GASTROOESOPHAGEAL REFLUX DISEASE
     Route: 065
  26. CYANOCOBALAMIN. [Concomitant]
     Active Substance: CYANOCOBALAMIN
  27. XYLOCAINE [Concomitant]
     Active Substance: LIDOCAINE HYDROCHLORIDE
  28. ANTIVERT [Concomitant]
     Active Substance: MECLIZINE HYDROCHLORIDE
  29. REQUIP [Concomitant]
     Active Substance: ROPINIROLE HYDROCHLORIDE
  30. AUGMENTIN [Concomitant]
     Active Substance: AMOXICILLIN\CLAVULANATE POTASSIUM
  31. NEXIUM 24HR [Suspect]
     Active Substance: ESOMEPRAZOLE MAGNESIUM
     Indication: GASTROOESOPHAGEAL REFLUX DISEASE
     Route: 048
     Dates: start: 199801, end: 201802
  32. DEXILANT [Suspect]
     Active Substance: DEXLANSOPRAZOLE
     Indication: GASTROOESOPHAGEAL REFLUX DISEASE
     Route: 065
     Dates: start: 2009
  33. TENORMIN [Concomitant]
     Active Substance: ATENOLOL
  34. BENTYL [Concomitant]
     Active Substance: DICYCLOMINE HYDROCHLORIDE
  35. ZANAFLEX [Concomitant]
     Active Substance: TIZANIDINE HYDROCHLORIDE
  36. MULTIVITAMIN [Concomitant]
     Active Substance: VITAMINS
  37. DITROPAN [Concomitant]
     Active Substance: OXYBUTYNIN CHLORIDE
  38. LIORESAL [Concomitant]
     Active Substance: BACLOFEN
  39. DEPLIN [Concomitant]
     Active Substance: LEVOMEFOLATE CALCIUM

REACTIONS (1)
  - Chronic kidney disease [Not Recovered/Not Resolved]
